FAERS Safety Report 25004750 (Version 1)
Quarter: 2025Q1

REPORT INFORMATION
  Report Type: Spontaneous
  Country: ES (occurrence: ES)
  Receive Date: 20250224
  Receipt Date: 20250224
  Transmission Date: 20250409
  Serious: Yes (Hospitalization)
  Sender: MYLAN
  Company Number: None

PATIENT
  Age: 78 Year
  Sex: Female
  Weight: 65 kg

DRUGS (3)
  1. TACROLIMUS [Interacting]
     Active Substance: TACROLIMUS
     Indication: Renal transplant
     Dosage: 4.5 MILLIGRAM, QD
     Dates: start: 2011
  2. MYCOPHENOLIC ACID [Interacting]
     Active Substance: MYCOPHENOLIC ACID
     Indication: Renal transplant
     Dosage: 360 MILLIGRAM, BID
     Dates: start: 2011
  3. PREDNISONE [Interacting]
     Active Substance: PREDNISONE
     Indication: Renal transplant
     Dosage: 5 MILLIGRAM, QD
     Dates: start: 2011

REACTIONS (2)
  - COVID-19 pneumonia [Recovered/Resolved]
  - Drug interaction [Unknown]

NARRATIVE: CASE EVENT DATE: 20240715
